FAERS Safety Report 5574209-8 (Version None)
Quarter: 2007Q4

REPORT INFORMATION
  Report Type: 
  Country: None (occurrence: None)
  Receive Date: 20071130
  Receipt Date: 20070918
  Transmission Date: 20080405
  Serious: No
  Sender: FDA-Public Use
  Company Number: PHEH2007US12490

PATIENT
  Sex: Female

DRUGS (2)
  1. TEKTURNA [Suspect]
     Dosage: 150 MG QD ORAL; 2 75 MG QD ORAL
     Route: 048
     Dates: start: 20070911, end: 20070914
  2. TEKTURNA [Suspect]
     Dosage: 150 MG QD ORAL; 2 75 MG QD ORAL
     Route: 048
     Dates: start: 20070915

REACTIONS (2)
  - BLOOD PRESSURE DECREASED [None]
  - FATIGUE [None]
